FAERS Safety Report 4486496-8 (Version None)
Quarter: 2004Q4

REPORT INFORMATION
  Report Type: 
  Country: None (occurrence: None)
  Receive Date: 20041021
  Receipt Date: 20041006
  Transmission Date: 20050328
  Serious: Yes (Hospitalization)
  Sender: FDA-Public Use
  Company Number: 2004SE05582

PATIENT
  Age: 64 Year
  Sex: Male
  Weight: 65 kg

DRUGS (4)
  1. BLOPRESS [Suspect]
     Indication: HYPERTENSION
     Dosage: 4 MG QD PO
     Route: 048
     Dates: start: 20021206
  2. INSULINS AND ANALOGUES [Concomitant]
  3. ALPHA GLUCOSIDASE INHIBITORS [Concomitant]
  4. CHOLESTEROL-AND TRIGLYCERIDES REDUCERS [Concomitant]

REACTIONS (4)
  - CEREBRAL INFARCTION [None]
  - DYSURIA [None]
  - MALAISE [None]
  - PNEUMONIA ASPIRATION [None]
